FAERS Safety Report 18269344 (Version 1)
Quarter: 2020Q3

REPORT INFORMATION
  Report Type: Spontaneous
  Country: ES (occurrence: ES)
  Receive Date: 20200915
  Receipt Date: 20200915
  Transmission Date: 20201103
  Serious: Yes (Hospitalization, Other)
  Sender: FDA-Public Use
  Company Number: ES-JAZZ-2020-ES-006947

PATIENT
  Age: 5 Year
  Sex: Male
  Weight: 20 kg

DRUGS (4)
  1. VINCRISTINE SULFATE. [Concomitant]
     Active Substance: VINCRISTINE SULFATE
     Indication: ACUTE LYMPHOCYTIC LEUKAEMIA
     Dosage: 1.22 MILLIGRAM, 4 DAYS
     Route: 042
     Dates: start: 20200309, end: 20200313
  2. CYTARABINE. [Concomitant]
     Active Substance: CYTARABINE
     Indication: ACUTE LYMPHOCYTIC LEUKAEMIA
     Dosage: 2450 MILLIGRAM, 12 HOUR
     Route: 042
     Dates: start: 20200313, end: 20200314
  3. ERWINASE [Suspect]
     Active Substance: ASPARAGINASE ERWINIA CHRYSANTHEMI
     Indication: ACUTE LYMPHOCYTIC LEUKAEMIA
     Dosage: 1620 KILO?INTERNATIONAL UNIT, 48 HOUR
     Route: 042
     Dates: start: 20200310, end: 20200316
  4. DEXAMETHASONE. [Suspect]
     Active Substance: DEXAMETHASONE
     Indication: ACUTE LYMPHOCYTIC LEUKAEMIA
     Dosage: 8 MILLIGRAM/SQ. METER, 12 HOUR
     Route: 042
     Dates: start: 20200313, end: 20200317

REACTIONS (1)
  - Pancreatitis [Recovered/Resolved]

NARRATIVE: CASE EVENT DATE: 20200317
